FAERS Safety Report 17939523 (Version 1)
Quarter: 2020Q2

REPORT INFORMATION
  Report Type: Spontaneous
  Country: DE (occurrence: DE)
  Receive Date: 20200625
  Receipt Date: 20200625
  Transmission Date: 20200714
  Serious: Yes (Hospitalization)
  Sender: FDA-Public Use
  Company Number: DE-TEVA-2020-DE-1790647

PATIENT
  Age: 67 Year
  Sex: Female
  Weight: 56.4 kg

DRUGS (11)
  1. MAGNESIUM VERLA [Concomitant]
     Active Substance: MAGNESIUM
     Dosage: 1 DOSAGE FORMS DAILY; 0-1-0-0
  2. KALIUM [Concomitant]
     Active Substance: POTASSIUM CHLORIDE
     Dosage: NEED
  3. FOLSAURE [Concomitant]
     Active Substance: FOLIC ACID
     Dosage: 1 DOSAGE FORMS DAILY; 1-0-0-0
  4. TORASEMID [Suspect]
     Active Substance: TORSEMIDE
     Dosage: 60 MILLIGRAM DAILY; 1-1-1-0
  5. PANTOPRAZOL [Concomitant]
     Active Substance: PANTOPRAZOLE SODIUM
     Dosage: 20 MILLIGRAM DAILY; 1-0-0-0
  6. SPIRONOLACTON [Concomitant]
     Active Substance: SPIRONOLACTONE
     Dosage: 100 MILLIGRAM DAILY; 1-0-1-0
  7. MARCUMAR [Suspect]
     Active Substance: PHENPROCOUMON
     Dosage: INR
  8. XIPAMID [Suspect]
     Active Substance: XIPAMIDE
     Dosage: 40 MILLIGRAM DAILY; 1-0-0-0
  9. ALLOPURINOL. [Concomitant]
     Active Substance: ALLOPURINOL
     Dosage: 100 MILLIGRAM DAILY; 1-0-0-0
  10. METOPROLOL. [Concomitant]
     Active Substance: METOPROLOL
     Dosage: 2 DOSAGE FORMS DAILY; 47.5 MG, 0-2-0-0
  11. METAMIZOL [Concomitant]
     Active Substance: METAMIZOLE SODIUM
     Dosage: 500 MG, NEED

REACTIONS (9)
  - Anaemia [Unknown]
  - Haematochezia [Unknown]
  - Dyspnoea [Unknown]
  - Diverticulum intestinal haemorrhagic [Unknown]
  - Sputum discoloured [Unknown]
  - Frequent bowel movements [Unknown]
  - Asthenia [Unknown]
  - Oedema peripheral [Unknown]
  - Nasopharyngitis [Unknown]
